FAERS Safety Report 9339124 (Version 3)
Quarter: 2014Q1

REPORT INFORMATION
  Report Type: Report from Study
  Country: CA (occurrence: CA)
  Receive Date: 20130610
  Receipt Date: 20140306
  Transmission Date: 20141002
  Serious: Yes (Other)
  Sender: FDA-Public Use
  Company Number: CA-JNJFOC-20130603105

PATIENT
  Sex: Female
  Weight: 106.2 kg

DRUGS (8)
  1. REMICADE [Suspect]
     Indication: COLITIS ULCERATIVE
     Route: 042
     Dates: start: 20130730
  2. REMICADE [Suspect]
     Indication: COLITIS ULCERATIVE
     Route: 042
     Dates: start: 20130227
  3. AMLODIPINE [Concomitant]
     Indication: HYPERTENSION
     Dosage: SINCE 2 YEARS
     Route: 065
     Dates: start: 2011
  4. NOVO-HYDRAZIDE [Concomitant]
     Route: 065
  5. LODIPINE [Concomitant]
     Route: 065
  6. IMURAN [Concomitant]
     Route: 065
  7. LORAZEPAM [Concomitant]
     Route: 065
  8. HYDROCORTISONE [Concomitant]
     Route: 042

REACTIONS (6)
  - Osteoarthritis [Not Recovered/Not Resolved]
  - Knee arthroplasty [Unknown]
  - Fatigue [Not Recovered/Not Resolved]
  - Malaise [Unknown]
  - Headache [Unknown]
  - Dizziness [Recovered/Resolved]
